FAERS Safety Report 9530186 (Version 1)
Quarter: 2013Q3

REPORT INFORMATION
  Report Type: Spontaneous
  Country: BR (occurrence: BR)
  Receive Date: 20130917
  Receipt Date: 20130917
  Transmission Date: 20140515
  Serious: Yes (Other)
  Sender: FDA-Public Use
  Company Number: BR-PFIZER INC-2013264929

PATIENT
  Age: 59 Year
  Sex: Female

DRUGS (1)
  1. AROMASIN [Suspect]
     Indication: NEOPLASM MALIGNANT
     Dosage: 1 TABLET OF 25 MG DAILY
     Route: 048
     Dates: start: 20120206

REACTIONS (2)
  - Lung infection [Unknown]
  - Drug ineffective [Not Recovered/Not Resolved]
